FAERS Safety Report 26014789 (Version 1)
Quarter: 2025Q4

REPORT INFORMATION
  Report Type: Spontaneous
  Country: JP (occurrence: JP)
  Receive Date: 20251108
  Receipt Date: 20251108
  Transmission Date: 20260117
  Serious: Yes (Other)
  Sender: ROCHE
  Company Number: JP-CHUGAI-2025034919

PATIENT
  Age: 62 Year
  Sex: Female

DRUGS (1)
  1. VABYSMO [Suspect]
     Active Substance: FARICIMAB-SVOA
     Indication: Retinal degeneration
     Dosage: 6 MILLIGRAM, ONCE/4WEEKS?STRENGTH 120 MG/ML
     Route: 031
     Dates: start: 202504

REACTIONS (1)
  - Retinal haemorrhage [Not Recovered/Not Resolved]

NARRATIVE: CASE EVENT DATE: 20250501
